FAERS Safety Report 13632583 (Version 1)
Quarter: 2017Q2

REPORT INFORMATION
  Report Type: Spontaneous
  Country: US (occurrence: US)
  Receive Date: 20170531
  Receipt Date: 20170531
  Transmission Date: 20170830
  Serious: No
  Sender: FDA-Public Use
  Company Number: US-ASTELLAS-1466805

PATIENT
  Sex: Female

DRUGS (8)
  1. LAETRILE [Concomitant]
     Active Substance: AMYGDALIN
  2. MSM [Concomitant]
     Active Substance: DIMETHYL SULFONE
  3. TARCEVA [Suspect]
     Active Substance: ERLOTINIB HYDROCHLORIDE
     Indication: BRONCHIAL CARCINOMA
     Route: 048
     Dates: start: 20140909
  4. NIACIN. [Concomitant]
     Active Substance: NIACIN
  5. BIOTIN [Concomitant]
     Active Substance: BIOTIN
  6. FISH OIL [Concomitant]
     Active Substance: FISH OIL
  7. VITAMIN C [Concomitant]
     Active Substance: ASCORBIC ACID
  8. FLAXSEED [Concomitant]
     Active Substance: FLAX SEED

REACTIONS (1)
  - Rash [Unknown]
